FAERS Safety Report 17091159 (Version 1)
Quarter: 2019Q4

REPORT INFORMATION
  Report Type: Spontaneous
  Country: GB (occurrence: GB)
  Receive Date: 20191129
  Receipt Date: 20191129
  Transmission Date: 20200122
  Serious: Yes (Other)
  Sender: FDA-Public Use
  Company Number: GB-TEVA-2019-GB-1143634

PATIENT
  Age: 50 Year
  Sex: Female
  Weight: 62.13 kg

DRUGS (2)
  1. CLEMIZOLE PENICILLIN [Concomitant]
     Active Substance: CLEMIZOLE PENICILLIN
     Indication: ANTIBIOTIC THERAPY
     Dosage: TAKEN 2 WEEKS PRIOR.
  2. CLARITHROMYCIN. [Suspect]
     Active Substance: CLARITHROMYCIN
     Indication: INFECTED DERMAL CYST
     Dosage: 1 GRAM
     Route: 048
     Dates: start: 20190305, end: 20190311

REACTIONS (9)
  - Muscular weakness [Recovered/Resolved with Sequelae]
  - Dysgeusia [Recovering/Resolving]
  - Insomnia [Recovered/Resolved with Sequelae]
  - Dry mouth [Recovered/Resolved]
  - Ageusia [Recovering/Resolving]
  - Pain in extremity [Recovered/Resolved with Sequelae]
  - Parosmia [Recovered/Resolved]
  - Decreased appetite [Recovered/Resolved with Sequelae]
  - Thirst [Recovered/Resolved]

NARRATIVE: CASE EVENT DATE: 20190305
